FAERS Safety Report 19513835 (Version 1)
Quarter: 2021Q3

REPORT INFORMATION
  Report Type: Spontaneous
  Country: US (occurrence: US)
  Receive Date: 20210709
  Receipt Date: 20210709
  Transmission Date: 20211014
  Serious: No
  Sender: FDA-Public Use
  Company Number: US-ORGANON-O2107USA000297

PATIENT
  Age: 27 Year
  Sex: Female
  Weight: 44 kg

DRUGS (1)
  1. NEXPLANON [Suspect]
     Active Substance: ETONOGESTREL
     Indication: CONTRACEPTION
     Dosage: 1 IMPLANT OF 68 MG ONCE
     Route: 059
     Dates: start: 20201029

REACTIONS (3)
  - Implant site erythema [Recovering/Resolving]
  - Implant site pain [Recovering/Resolving]
  - Implant site swelling [Recovering/Resolving]

NARRATIVE: CASE EVENT DATE: 20210630
